FAERS Safety Report 8902532 (Version 1)
Quarter: 2012Q4

REPORT INFORMATION
  Report Type: 
  Country: JP (occurrence: JP)
  Receive Date: 20121112
  Receipt Date: 20121112
  Transmission Date: 20130627
  Serious: Yes (Other)
  Sender: FDA-Public Use
  Company Number: JP-PFIZER INC-2012279741

PATIENT
  Age: 54 Year
  Sex: Female

DRUGS (7)
  1. CELECOX [Suspect]
     Indication: GONARTHROSIS
     Dosage: 100 mg, 2x/day
     Route: 048
     Dates: start: 20121022
  2. LIMAS [Interacting]
     Dosage: UNK
     Route: 048
  3. DEPAKENE [Concomitant]
     Dosage: UNK
  4. LANDSEN [Concomitant]
     Dosage: UNK
     Route: 048
  5. INDERAL [Concomitant]
     Dosage: UNK
  6. ZYPREXA [Concomitant]
     Dosage: UNK
     Route: 048
  7. BORRAZA-G [Concomitant]
     Dosage: UNK

REACTIONS (4)
  - Decreased activity [Recovered/Resolved]
  - Drug interaction [Unknown]
  - Somnolence [Unknown]
  - Malaise [Recovered/Resolved]
